FAERS Safety Report 15271758 (Version 2)
Quarter: 2018Q3

REPORT INFORMATION
  Report Type: Spontaneous
  Country: US (occurrence: US)
  Receive Date: 20180813
  Receipt Date: 20180819
  Transmission Date: 20181010
  Serious: Yes (Hospitalization, Other)
  Sender: FDA-Public Use
  Company Number: US-SHIRE-US201830216

PATIENT
  Age: 16 Year
  Sex: Female

DRUGS (1)
  1. INTUNIV [Suspect]
     Active Substance: GUANFACINE HYDROCHLORIDE
     Indication: TOURETTE^S DISORDER
     Dosage: 0.5 MG, 2X/DAY:BID
     Route: 048

REACTIONS (5)
  - Dry mouth [Unknown]
  - Electrocardiogram QT prolonged [Recovering/Resolving]
  - Overdose [Recovered/Resolved]
  - Hypertension [Recovered/Resolved]
  - Orthostatic hypotension [Recovered/Resolved]
